FAERS Safety Report 4591050-3 (Version None)
Quarter: 2005Q1

REPORT INFORMATION
  Report Type: 
  Country: None (occurrence: None)
  Receive Date: 20050222
  Receipt Date: 20050222
  Transmission Date: 20050727
  Serious: No
  Sender: FDA-Public Use
  Company Number: None

PATIENT
  Age: 45 Year
  Sex: Female
  Weight: 63.5036 kg

DRUGS (2)
  1. TOPAMAX [Suspect]
     Indication: MIGRAINE
     Dosage: 25 MG   DAILY   ORAL
     Route: 048
     Dates: start: 20050211, end: 20050217
  2. TOPAMAX [Suspect]
     Indication: NEUROLOGICAL SYMPTOM
     Dosage: 25 MG   DAILY   ORAL
     Route: 048
     Dates: start: 20050211, end: 20050217

REACTIONS (3)
  - ANGLE CLOSURE GLAUCOMA [None]
  - CHOROIDAL EFFUSION [None]
  - VISUAL ACUITY REDUCED [None]
